FAERS Safety Report 5210578-6 (Version None)
Quarter: 2006Q4

REPORT INFORMATION
  Report Type: 
  Country: None (occurrence: None)
  Receive Date: 20061106
  Receipt Date: 20060926
  Transmission Date: 20070319
  Serious: No
  Sender: FDA-Public Use
  Company Number: VNL_0220_2006

PATIENT
  Age: 77 Year
  Sex: Male
  Weight: 61.2356 kg

DRUGS (8)
  1. APOKYN [Suspect]
     Indication: PARKINSON'S DISEASE
     Dosage: 0.3 ML BID SC
     Route: 058
     Dates: start: 20060823
  2. STALEVO 100 [Concomitant]
  3. REQUIP [Concomitant]
  4. THIEXYPHENIDYL [Concomitant]
  5. DEPAKOTE [Concomitant]
  6. RISPERDAL [Concomitant]
  7. SYNTHROID [Concomitant]
  8. TRIAMTERENCE [Concomitant]

REACTIONS (5)
  - ANOREXIA [None]
  - ASTHENIA [None]
  - CONDITION AGGRAVATED [None]
  - FALL [None]
  - FEAR [None]
